FAERS Safety Report 5977583-3 (Version None)
Quarter: 2008Q4

REPORT INFORMATION
  Report Type: 
  Country: None (occurrence: None)
  Receive Date: 20081201
  Receipt Date: 20081201
  Transmission Date: 20090506
  Serious: Yes (Hospitalization)
  Sender: FDA-Public Use
  Company Number: None

PATIENT
  Age: 58 Year
  Sex: Female
  Weight: 92.9874 kg

DRUGS (1)
  1. SIMVASTATIN [Suspect]
     Indication: BLOOD CHOLESTEROL INCREASED
     Dosage: 1 PILL EVERY NIGHT/BEDTIM

REACTIONS (5)
  - DRUG INTERACTION [None]
  - DYSPNOEA [None]
  - FEAR [None]
  - HEART RATE DECREASED [None]
  - HEART RATE IRREGULAR [None]
